FAERS Safety Report 24661630 (Version 1)
Quarter: 2024Q4

REPORT INFORMATION
  Report Type: Spontaneous
  Country: US (occurrence: US)
  Receive Date: 20241125
  Receipt Date: 20241125
  Transmission Date: 20250114
  Serious: No
  Sender: SANOFI AVENTIS
  Company Number: US-SA-2024SA334063

PATIENT
  Sex: Male
  Weight: 96.36 kg

DRUGS (5)
  1. DUPIXENT [Suspect]
     Active Substance: DUPILUMAB
     Indication: Dermatitis atopic
     Dosage: 300 MG, QOW
     Route: 058
  2. ALLOPURINOL [Concomitant]
     Active Substance: ALLOPURINOL
  3. ZEPBOUND [Concomitant]
     Active Substance: TIRZEPATIDE
  4. PREDNISONE [Concomitant]
     Active Substance: PREDNISONE
  5. ATORVASTATIN CALCIUM [Concomitant]
     Active Substance: ATORVASTATIN CALCIUM

REACTIONS (3)
  - Swelling [Unknown]
  - Urticaria [Unknown]
  - Rash [Unknown]
